FAERS Safety Report 6124350-6 (Version None)
Quarter: 2009Q1

REPORT INFORMATION
  Report Type: 
  Country: None (occurrence: None)
  Receive Date: 20090318
  Receipt Date: 20090318
  Transmission Date: 20090719
  Serious: Yes (Disabling)
  Sender: FDA-Public Use
  Company Number: None

PATIENT
  Age: 54 Year
  Sex: Female
  Weight: 90.7194 kg

DRUGS (1)
  1. FLUPHENAZINE DECANOATE [Suspect]
     Indication: BIPOLAR DISORDER
     Dosage: 25MG EVERY 4 WEEKS IM
     Route: 030
     Dates: start: 20090101, end: 20090228

REACTIONS (1)
  - TARDIVE DYSKINESIA [None]
